FAERS Safety Report 25019113 (Version 1)
Quarter: 2025Q1

REPORT INFORMATION
  Report Type: Spontaneous
  Country: US (occurrence: US)
  Receive Date: 20250227
  Receipt Date: 20250227
  Transmission Date: 20250409
  Serious: No
  Sender: SANDOZ
  Company Number: US-SANDOZ-SDZ2024US107718

PATIENT
  Sex: Female

DRUGS (1)
  1. ESTRADIOL [Suspect]
     Active Substance: ESTRADIOL
     Indication: Product used for unknown indication
     Dosage: 0.025 MG, Q2W (0.025MG/24H 8TTS US)
     Route: 062

REACTIONS (4)
  - Pain [Unknown]
  - Abdominal distension [Unknown]
  - Swelling [Unknown]
  - Inflammation [Unknown]
